FAERS Safety Report 4314812-6 (Version None)
Quarter: 2004Q1

REPORT INFORMATION
  Report Type: 
  Country: None (occurrence: None)
  Receive Date: 20040310
  Receipt Date: 20040303
  Transmission Date: 20041129
  Serious: Yes (Other)
  Sender: FDA-Public Use
  Company Number: PHBS2004CA03017

PATIENT
  Sex: Male

DRUGS (2)
  1. TEGRETOL [Suspect]
     Dosage: 100 MG HS
     Route: 048
     Dates: start: 20040223
  2. TEGRETOL [Suspect]
     Dosage: 100 MG, BID
     Route: 048
     Dates: end: 20040302

REACTIONS (2)
  - BALANITIS [None]
  - HALLUCINATION, VISUAL [None]
